FAERS Safety Report 14785819 (Version 1)
Quarter: 2018Q2

REPORT INFORMATION
  Report Type: Report from Study
  Country: None (occurrence: IT)
  Receive Date: 20180420
  Receipt Date: 20180420
  Transmission Date: 20180711
  Serious: Yes (Death)
  Sender: FDA-Public Use
  Company Number: IT-ABBVIE-18K-083-2330349-00

PATIENT
  Age: 71 Year
  Sex: Female

DRUGS (1)
  1. DUODOPA [Suspect]
     Active Substance: CARBIDOPA\LEVODOPA
     Indication: PARKINSON^S DISEASE
     Dosage: MD 4.5+3?CR 5?ED 4.5
     Route: 050
     Dates: start: 20151116, end: 20180417

REACTIONS (5)
  - Intestinal obstruction [Fatal]
  - Stoma site haemorrhage [Fatal]
  - Dyskinesia [Fatal]
  - Internal haemorrhage [Fatal]
  - Colon neoplasm [Fatal]

NARRATIVE: CASE EVENT DATE: 20180417
